FAERS Safety Report 5003743-4 (Version None)
Quarter: 2006Q2

REPORT INFORMATION
  Report Type: 
  Country: None (occurrence: None)
  Receive Date: 20060516
  Receipt Date: 20060406
  Transmission Date: 20061013
  Serious: Yes (Hospitalization)
  Sender: FDA-Public Use
  Company Number: US-MERCK-0604USA00931

PATIENT
  Age: 52 Year
  Sex: Female
  Weight: 110 kg

DRUGS (35)
  1. VIOXX [Suspect]
     Indication: RHEUMATOID ARTHRITIS
     Route: 048
     Dates: start: 19990501, end: 20040901
  2. LANOXIN [Concomitant]
     Route: 065
  3. SINGULAIR [Concomitant]
     Route: 048
  4. LOTENSIN [Concomitant]
     Route: 065
  5. COVERA-HS [Concomitant]
     Route: 065
  6. DIOVAN [Concomitant]
     Route: 065
  7. THEOPHYLLINE [Concomitant]
     Route: 065
  8. ALTACE [Concomitant]
     Route: 065
  9. PRILOSEC [Concomitant]
     Route: 048
  10. GLUCOPHAGE [Concomitant]
     Route: 065
  11. PENTOXIFYLLINE [Concomitant]
     Route: 065
  12. AMBIEN [Concomitant]
     Route: 065
  13. PAXIL [Concomitant]
     Route: 065
  14. CLONAZEPAM [Concomitant]
     Route: 065
  15. ZESTRIL [Concomitant]
     Route: 065
  16. GLIPIZIDE [Concomitant]
     Route: 065
  17. CELEBREX [Concomitant]
     Route: 065
  18. AMPICILLIN [Concomitant]
     Route: 065
  19. CLARITIN [Concomitant]
     Route: 065
  20. ULTRAM [Concomitant]
     Route: 065
  21. ATACAND [Concomitant]
     Route: 065
  22. HYZAAR [Concomitant]
     Route: 048
  23. EFFEXOR [Concomitant]
     Route: 065
  24. ISOSORBIDE [Concomitant]
     Route: 065
  25. ASPIRIN [Concomitant]
     Route: 065
  26. LOPRESSOR [Concomitant]
     Route: 065
  27. AMARYL [Concomitant]
     Route: 065
  28. PREVACID [Concomitant]
     Route: 065
  29. MICARDIS [Concomitant]
     Route: 065
  30. ZITHROMAX [Concomitant]
     Route: 065
  31. QUININE SULFATE [Concomitant]
     Route: 065
  32. ACETAMINOPHEN AND CODEINE [Concomitant]
     Route: 065
  33. PROCARDIA [Concomitant]
     Route: 065
  34. OXYBUTYNIN [Concomitant]
     Route: 065
  35. VASOTEC [Concomitant]
     Route: 048

REACTIONS (13)
  - ABDOMINAL PAIN [None]
  - ANGINA PECTORIS [None]
  - ARTHRALGIA [None]
  - ASTHMA [None]
  - BLOOD PRESSURE INADEQUATELY CONTROLLED [None]
  - CHEST PAIN [None]
  - CHOLECYSTITIS [None]
  - CORONARY ARTERY DISEASE [None]
  - HEADACHE [None]
  - MYOCARDIAL INFARCTION [None]
  - NECK PAIN [None]
  - PAIN IN EXTREMITY [None]
  - ROAD TRAFFIC ACCIDENT [None]
